FAERS Safety Report 20074279 (Version 1)
Quarter: 2021Q4

REPORT INFORMATION
  Report Type: Spontaneous
  Country: US (occurrence: None)
  Receive Date: 20211114
  Receipt Date: 20211114
  Transmission Date: 20220304
  Serious: Yes (Hospitalization)
  Sender: FDA-Public Use
  Company Number: None

PATIENT
  Age: 42 Year
  Sex: Female

DRUGS (1)
  1. AMBRISENTAN [Suspect]
     Active Substance: AMBRISENTAN

REACTIONS (5)
  - Fatigue [None]
  - Dyspnoea [None]
  - Generalised oedema [None]
  - Fluid retention [None]
  - Pulmonary hypertension [None]

NARRATIVE: CASE EVENT DATE: 20211102
